FAERS Safety Report 6212880-8 (Version None)
Quarter: 2009Q2

REPORT INFORMATION
  Report Type: 
  Country: None (occurrence: None)
  Receive Date: 20090603
  Receipt Date: 20090526
  Transmission Date: 20091009
  Serious: Yes (Hospitalization)
  Sender: FDA-Public Use
  Company Number: CA-ASTRAZENECA-2009UW13512

PATIENT
  Age: 66 Year
  Sex: Female

DRUGS (3)
  1. ARIMIDEX [Suspect]
     Indication: BREAST CANCER
     Route: 048
     Dates: start: 20050101
  2. SYNTHROID [Concomitant]
  3. AVAPRO [Concomitant]
     Indication: HYPERTENSION

REACTIONS (2)
  - BLOOD CALCIUM INCREASED [None]
  - PARATHYROID GLAND ENLARGEMENT [None]
